FAERS Safety Report 7826139-6 (Version None)
Quarter: 2011Q4

REPORT INFORMATION
  Report Type: 
  Country: None (occurrence: None)
  Receive Date: 20111019
  Receipt Date: 20111014
  Transmission Date: 20120403
  Serious: Yes (Hospitalization, Other)
  Sender: FDA-Public Use
  Company Number: US-AMGEN-USASP2011053257

PATIENT
  Age: 70 Year
  Sex: Female

DRUGS (1)
  1. ENBREL [Suspect]
     Indication: RHEUMATOID ARTHRITIS
     Dosage: 50 MG, QWK
     Dates: start: 20040428, end: 20110804

REACTIONS (6)
  - THROMBOSIS [None]
  - RHEUMATOID ARTHRITIS [None]
  - DYSPHAGIA [None]
  - SPINAL OSTEOARTHRITIS [None]
  - CATARACT [None]
  - URINARY TRACT INFECTION [None]
